FAERS Safety Report 10769351 (Version 1)
Quarter: 2015Q1

REPORT INFORMATION
  Report Type: Spontaneous
  Country: US (occurrence: None)
  Receive Date: 20150204
  Receipt Date: 20150204
  Transmission Date: 20150721
  Serious: Yes (Death)
  Sender: FDA-Public Use
  Company Number: 2726823

PATIENT
  Age: 43 Year
  Sex: Male

DRUGS (4)
  1. CHLORDIAZEPOXIDE [Suspect]
     Active Substance: CHLORDIAZEPOXIDE
     Indication: PRODUCT USED FOR UNKNOWN INDICATION
     Dosage: NOT REPORTED, UNKNOWN, UNKNOWN
     Dates: start: 2013, end: 2013
  2. ACETAMINOPHEN. [Suspect]
     Active Substance: ACETAMINOPHEN
     Indication: PRODUCT USED FOR UNKNOWN INDICATION
     Dosage: NOT REPORTED, UNKNOWN, UNKNOWN?
     Dates: start: 2013, end: 2013
  3. DOXYLAMINE [Suspect]
     Active Substance: DOXYLAMINE
     Indication: PRODUCT USED FOR UNKNOWN INDICATION
     Dosage: NOT REPORTED, UNKNOWN, UNKNOWN
     Dates: start: 2013, end: 2013
  4. FENTANYL CITRATE. [Suspect]
     Active Substance: FENTANYL CITRATE
     Indication: PRODUCT USED FOR UNKNOWN INDICATION
     Dosage: NOT REPORTED, UNKNOWN, UNKNOWN
     Dates: start: 2013, end: 2013

REACTIONS (2)
  - Drug abuse [None]
  - Poisoning [None]

NARRATIVE: CASE EVENT DATE: 2013
